FAERS Safety Report 5265682-3 (Version None)
Quarter: 2007Q1

REPORT INFORMATION
  Report Type: 
  Country: None (occurrence: None)
  Receive Date: 20061213
  Receipt Date: 20040316
  Transmission Date: 20070707
  Serious: Yes (Other)
  Sender: FDA-Public Use
  Company Number: 2004UW05046

PATIENT
  Age: 61 Year
  Sex: Female
  Weight: 49.4421 kg

DRUGS (4)
  1. IRESSA [Suspect]
     Indication: NON-SMALL CELL LUNG CANCER
     Dosage: 250 MG PO
     Route: 048
     Dates: start: 20040304
  2. ZOFRAN [Concomitant]
  3. DIFLUCAN [Concomitant]
  4. LASIX [Concomitant]

REACTIONS (5)
  - ABDOMINAL DISTENSION [None]
  - BLOOD PRESSURE DECREASED [None]
  - CANDIDIASIS [None]
  - FLATULENCE [None]
  - PAIN [None]
